FAERS Safety Report 23106172 (Version 1)
Quarter: 2023Q4

REPORT INFORMATION
  Report Type: Spontaneous
  Country: US (occurrence: US)
  Receive Date: 20231025
  Receipt Date: 20231025
  Transmission Date: 20240110
  Serious: No
  Sender: FDA-Public Use
  Company Number: US-BAUSCH-BL-2023-015606

PATIENT
  Sex: Female

DRUGS (1)
  1. TRETINOIN [Suspect]
     Active Substance: TRETINOIN
     Indication: Acne
     Dosage: STARTED ABOUT A WEEK AND A HALF AGO. EVERY NIGHT AT BED TIME
     Route: 061
     Dates: start: 202310, end: 202310

REACTIONS (3)
  - Chest pain [Recovered/Resolved]
  - Lethargy [Not Recovered/Not Resolved]
  - Illness [Not Recovered/Not Resolved]

NARRATIVE: CASE EVENT DATE: 20231001
